FAERS Safety Report 17930775 (Version 3)
Quarter: 2020Q3

REPORT INFORMATION
  Report Type: Spontaneous
  Country: US (occurrence: US)
  Receive Date: 20200623
  Receipt Date: 20200805
  Transmission Date: 20201103
  Serious: Yes (Hospitalization)
  Sender: FDA-Public Use
  Company Number: US-VERTEX PHARMACEUTICALS-2020-013361

PATIENT
  Age: 15 Year
  Sex: Female
  Weight: 45 kg

DRUGS (26)
  1. CIPRO [Concomitant]
     Active Substance: CIPROFLOXACIN HYDROCHLORIDE
     Dosage: 750 MG
  2. HYDROXYZINE [Concomitant]
     Active Substance: HYDROXYZINE HYDROCHLORIDE
     Indication: ANXIETY
     Dosage: 25 MG EVERY 6 HRS, PRN
     Route: 048
  3. VITAMIN D [ERGOCALCIFEROL] [Concomitant]
     Active Substance: ERGOCALCIFEROL
     Dosage: 1000 TO 2000 UNITS TWICE DAILY
  4. ALBUTEROL SULFATE AND IPRATROPIUM BROMIDE [Concomitant]
     Active Substance: ALBUTEROL SULFATE\IPRATROPIUM BROMIDE
     Indication: CHEST DISCOMFORT
     Dosage: Q4 HRS FOR 48 HRS
     Route: 055
     Dates: start: 20200628
  5. ALBUTEROL SULFATE AND IPRATROPIUM BROMIDE [Concomitant]
     Active Substance: ALBUTEROL SULFATE\IPRATROPIUM BROMIDE
     Dosage: REDUCED TO 3 TIMES DAILY AND EVERY 4HRS PRN
     Dates: start: 20200629
  6. PREDNISONE. [Concomitant]
     Active Substance: PREDNISONE
     Dosage: 20 MG, BID
     Route: 048
     Dates: start: 20200703, end: 20200705
  7. PREDNISONE. [Concomitant]
     Active Substance: PREDNISONE
     Dosage: 15 MG, QD
     Route: 048
     Dates: start: 20200708, end: 20200709
  8. ONDANSETRON [Concomitant]
     Active Substance: ONDANSETRON
     Indication: NAUSEA
     Dosage: 4 MG EVERY 6 HRS , PRN
  9. TRIKAFTA [Suspect]
     Active Substance: ELEXACAFTOR\IVACAFTOR\TEZACAFTOR
     Indication: CYSTIC FIBROSIS
     Dosage: 2 ORANGE TABS (100 MG ELEXA/ 50 MG TEZA/ 75 MG IVA) IN AM AND 1 LIGHT BLUE TABLET (150 MG IVA) IN PM
     Route: 048
     Dates: start: 20200101
  10. FLUOXETINE [Concomitant]
     Active Substance: FLUOXETINE HYDROCHLORIDE
     Dosage: 40 MG, QD
     Route: 048
  11. CETRIZINE [Concomitant]
     Active Substance: CETIRIZINE HYDROCHLORIDE
     Indication: HYPERSENSITIVITY
     Dosage: 10 MG, QD, PRN
  12. MIRALAX [Concomitant]
     Active Substance: POLYETHYLENE GLYCOL 3350
     Indication: CONSTIPATION
     Dosage: 17 GRAM, 1?3 TIMES DAILY
  13. PREDNISONE. [Concomitant]
     Active Substance: PREDNISONE
     Dosage: 30 MG, QD
     Route: 048
     Dates: start: 20200424, end: 20200425
  14. PREDNISONE. [Concomitant]
     Active Substance: PREDNISONE
     Dosage: 15 MG, BID
     Route: 048
     Dates: start: 20200706, end: 20200707
  15. DEOXYRIBONUCLEASE HUMAN [Concomitant]
     Dosage: 2.5 MG, DAILY TO TWICE DAILY
  16. CEFTAZIDIME. [Suspect]
     Active Substance: CEFTAZIDIME
     Indication: INFECTIVE EXACERBATION OF BRONCHIECTASIS
     Dosage: 4000 MG, OVER 3 HRS EVERY 8 HRS
     Route: 042
     Dates: start: 20200612
  17. MIRTAZAPINE. [Concomitant]
     Active Substance: MIRTAZAPINE
     Dosage: 7.5 MG, NIGHTLY
  18. URSODIOL. [Concomitant]
     Active Substance: URSODIOL
     Dosage: 600 MG, BID
     Route: 048
  19. IBUPROFAN [Concomitant]
     Active Substance: IBUPROFEN
     Indication: PAIN
     Dosage: 400 MG EVETY 6 HRS, PRN
     Route: 048
  20. PREDNISONE. [Concomitant]
     Active Substance: PREDNISONE
     Dosage: 20 MG
     Route: 048
     Dates: start: 20200426, end: 20200427
  21. PREDNISONE. [Concomitant]
     Active Substance: PREDNISONE
     Dosage: 10 MG
     Route: 048
     Dates: start: 20200428, end: 2020
  22. CEFTAZIDIME. [Suspect]
     Active Substance: CEFTAZIDIME
     Indication: BRONCHITIS
  23. PREDNISONE. [Concomitant]
     Active Substance: PREDNISONE
     Dosage: 40 MG, QD
     Route: 048
     Dates: start: 20200421, end: 20200423
  24. CYPROHEPTADINE. [Concomitant]
     Active Substance: CYPROHEPTADINE
     Dosage: 2?4 MG, TID
  25. MINOCYCLINE [Concomitant]
     Active Substance: MINOCYCLINE HYDROCHLORIDE
  26. HYPERTONIC SALINE SOLUTION [Concomitant]
     Active Substance: SODIUM CHLORIDE
     Dosage: INCREASE FREQUENCY FROM DAILY TO TWICE

REACTIONS (8)
  - Upper respiratory tract infection [Recovering/Resolving]
  - Headache [Unknown]
  - Fungal test positive [Recovering/Resolving]
  - Influenza [Recovering/Resolving]
  - Transaminases increased [Recovering/Resolving]
  - Infective exacerbation of bronchiectasis [Recovering/Resolving]
  - Bronchitis [Recovering/Resolving]
  - Anxiety [Recovering/Resolving]

NARRATIVE: CASE EVENT DATE: 202002
